FAERS Safety Report 16557701 (Version 2)
Quarter: 2019Q3

REPORT INFORMATION
  Report Type: Report from Study
  Country: GB (occurrence: GB)
  Receive Date: 20190711
  Receipt Date: 20190724
  Transmission Date: 20191004
  Serious: Yes (Other)
  Sender: FDA-Public Use
  Company Number: GB-PFIZER INC-2019286906

PATIENT
  Age: 21 Year
  Sex: Female

DRUGS (11)
  1. SOLIRIS [Suspect]
     Active Substance: ECULIZUMAB
     Indication: PAROXYSMAL NOCTURNAL HAEMOGLOBINURIA
     Dosage: 900 MG, EVERY 2 WEEKS
     Route: 065
     Dates: start: 20160623
  2. SOLIRIS [Suspect]
     Active Substance: ECULIZUMAB
     Dosage: 900 MG, EVERY 2 WEEKS
     Route: 065
     Dates: start: 20160623
  3. SOLIRIS [Suspect]
     Active Substance: ECULIZUMAB
     Dosage: 600 MG, WEEKLY
     Route: 065
     Dates: start: 20160526, end: 20160616
  4. SOLIRIS [Suspect]
     Active Substance: ECULIZUMAB
     Dosage: 900 MG, EVERY 2 WEEKS
     Route: 065
     Dates: start: 20160623
  5. FOLIC ACID. [Concomitant]
     Active Substance: FOLIC ACID
     Dosage: UNK
     Route: 065
  6. PENICILLIN V [PHENOXYMETHYLPENICILLIN] [Concomitant]
     Active Substance: PENICILLIN V
     Dosage: 2 UNK, DAILY (UNK, BID)
     Route: 065
  7. SOLIRIS [Suspect]
     Active Substance: ECULIZUMAB
     Dosage: 900 MG, EVERY 2 WEEKS
     Route: 065
     Dates: start: 20160623
  8. SOLIRIS [Suspect]
     Active Substance: ECULIZUMAB
     Dosage: 900 MG, EVERY 2 WEEKS
     Route: 065
     Dates: start: 20160623
  9. SERTRALINE HCL [Suspect]
     Active Substance: SERTRALINE HYDROCHLORIDE
     Indication: DEPRESSION
     Dosage: UNK
     Route: 065
     Dates: start: 20190520
  10. IRON COMPLEX [ASCORBIC ACID;COPPER;CYANOCOBALAMIN;FOLIC ACID;IRON;MANG [Concomitant]
     Dosage: UNK
     Route: 065
  11. COCODAMOL [Concomitant]
     Active Substance: ACETAMINOPHEN\CODEINE PHOSPHATE
     Dosage: UNK
     Route: 065

REACTIONS (19)
  - Contusion [Not Recovered/Not Resolved]
  - Chromaturia [Not Recovered/Not Resolved]
  - Dyspnoea [Recovered/Resolved]
  - Urinary tract infection [Recovered/Resolved]
  - Lethargy [Not Recovered/Not Resolved]
  - Fatigue [Not Recovered/Not Resolved]
  - Cyst [Unknown]
  - Depressed mood [Unknown]
  - Tonsillitis [Unknown]
  - Depression [Unknown]
  - Panic attack [Recovered/Resolved]
  - Haemolysis [Not Recovered/Not Resolved]
  - Abscess oral [Recovered/Resolved]
  - Migraine [Not Recovered/Not Resolved]
  - Alopecia [Unknown]
  - Dizziness [Not Recovered/Not Resolved]
  - Bruxism [Unknown]
  - Abdominal pain [Not Recovered/Not Resolved]
  - Blood pressure decreased [Recovered/Resolved]

NARRATIVE: CASE EVENT DATE: 20190612
